FAERS Safety Report 6186929-5 (Version None)
Quarter: 2009Q2

REPORT INFORMATION
  Report Type: 
  Country: None (occurrence: None)
  Receive Date: 20090508
  Receipt Date: 20090421
  Transmission Date: 20091009
  Serious: Yes (Hospitalization, Other)
  Sender: FDA-Public Use
  Company Number: ADE# 09-103DPR

PATIENT
  Age: 52 Year
  Sex: Male

DRUGS (1)
  1. DIGOXIN [Suspect]
     Indication: CARDIAC FAILURE
     Dates: start: 20060101, end: 20090317

REACTIONS (7)
  - CARDIAC FAILURE ACUTE [None]
  - CARDIAC FAILURE CHRONIC [None]
  - GASTROENTERITIS VIRAL [None]
  - HYPERKALAEMIA [None]
  - POLYURIA [None]
  - RENAL FAILURE ACUTE [None]
  - RENAL FAILURE CHRONIC [None]
